FAERS Safety Report 19312104 (Version 1)
Quarter: 2021Q2

REPORT INFORMATION
  Report Type: Spontaneous
  Country: US (occurrence: US)
  Receive Date: 20210527
  Receipt Date: 20210527
  Transmission Date: 20210717
  Serious: Yes (Hospitalization)
  Sender: FDA-Public Use
  Company Number: US-TEVA-2021-US-1914848

PATIENT
  Age: 84 Year
  Sex: Male

DRUGS (2)
  1. COLCHICINE. [Suspect]
     Active Substance: COLCHICINE
     Indication: MYOCARDITIS
     Route: 065
  2. ASPIRIN. [Concomitant]
     Active Substance: ASPIRIN
     Indication: MYOCARDITIS
     Route: 065

REACTIONS (5)
  - Weight decreased [Unknown]
  - Dysgeusia [Recovered/Resolved]
  - Muscle atrophy [Unknown]
  - Decreased appetite [Recovered/Resolved]
  - Hypophagia [Recovered/Resolved]
